FAERS Safety Report 7982368-2 (Version None)
Quarter: 2011Q4

REPORT INFORMATION
  Report Type: 
  Country: None (occurrence: None)
  Receive Date: 20111215
  Receipt Date: 20111205
  Transmission Date: 20120403
  Serious: Yes (Death, Other)
  Sender: FDA-Public Use
  Company Number: PHHY2011CN107695

PATIENT

DRUGS (10)
  1. BASILIXIMAB [Suspect]
     Dosage: 20 MG ON DAY 4 POST TRANSPLANTATION
  2. MYCOPHENOLATE MOFETIL [Concomitant]
     Indication: STEM CELL TRANSPLANT
     Dosage: 0.25-0.5 G/D
  3. ATG-FRESENIUS [Concomitant]
     Indication: STEM CELL TRANSPLANT
     Dosage: 5 MG/KG, UNK
  4. CYCLOSPORINE [Suspect]
     Dosage: 5 MG/KG/DAY
  5. CYCLOSPORINE [Suspect]
     Dosage: 2.5 MG/KG/DAY
  6. METHOTREXATE [Concomitant]
     Dosage: 10 MG/M2, ON DAYS 3, 6 AND 11
  7. NEUPOGEN [Concomitant]
     Dosage: UNK UKN, UNK
  8. CYCLOSPORINE [Suspect]
     Indication: STEM CELL TRANSPLANT
     Dosage: 1.5 MG/KG DAILY, ON DAY 7AND 2
     Route: 042
  9. BASILIXIMAB [Suspect]
     Indication: STEM CELL TRANSPLANT
     Dosage: 20 MG TWO HOURS PRIOR TO TRANSPLANT
  10. METHOTREXATE [Concomitant]
     Indication: STEM CELL TRANSPLANT
     Dosage: 15 MG/M2, ON DAY 1

REACTIONS (2)
  - GRAFT VERSUS HOST DISEASE [None]
  - NEUROMYELITIS OPTICA [None]
